FAERS Safety Report 15010900 (Version 1)
Quarter: 2018Q2

REPORT INFORMATION
  Report Type: Spontaneous
  Country: CA (occurrence: CA)
  Receive Date: 20180614
  Receipt Date: 20180614
  Transmission Date: 20180711
  Serious: Yes (Death)
  Sender: FDA-Public Use
  Company Number: CA-PFIZER INC-2017183144

PATIENT
  Age: 61 Year
  Sex: Female

DRUGS (15)
  1. ZOPICLONE [Concomitant]
     Active Substance: ZOPICLONE
     Dosage: 7.5 MG, UNK
  2. METFORMIN [Concomitant]
     Active Substance: METFORMIN HYDROCHLORIDE
     Dosage: 1 TAB AS DIRECTED
  3. CESAMET [Concomitant]
     Active Substance: NABILONE
     Dosage: 0.5 MG, 3X/DAY
  4. PANTOPRAZOLE [Concomitant]
     Active Substance: PANTOPRAZOLE
     Dosage: 40 MG, UNK
  5. LACTULOSE. [Concomitant]
     Active Substance: LACTULOSE
     Dosage: UNK
  6. VITAMIN D [Concomitant]
     Active Substance: CHOLECALCIFEROL
     Dosage: UNK
  7. DEXAMETHASONE. [Concomitant]
     Active Substance: DEXAMETHASONE
     Dosage: 4MG 1 TAB AM AND 1/2 AT NOON
  8. IBRANCE [Suspect]
     Active Substance: PALBOCICLIB
     Dosage: 125 MG, CYCLIC (DAILY FOR 21 DAYS AND OFF FOR 7 DAYS)
     Route: 048
     Dates: start: 20170419, end: 20170816
  9. CALCIUM [Concomitant]
     Active Substance: CALCIUM
     Dosage: UNK
  10. ATORVASTATIN [Concomitant]
     Active Substance: ATORVASTATIN
     Dosage: 10 MG, UNK
  11. ONDANSETRON [Concomitant]
     Active Substance: ONDANSETRON
     Dosage: 4-8 MG
  12. SENNOSIDES. [Concomitant]
     Active Substance: SENNOSIDES
     Dosage: 8.6 MG, UNK
  13. VENLAFAXINE [Concomitant]
     Active Substance: VENLAFAXINE HYDROCHLORIDE
     Dosage: 75 MG, UNK
  14. TEMAZEPAM. [Concomitant]
     Active Substance: TEMAZEPAM
     Dosage: 15 MG, AT BEDTIME
  15. STATEX /00036302/ [Concomitant]
     Active Substance: MORPHINE SULFATE
     Dosage: 1 DF, EVERY 4 HOURS AS NEEDED

REACTIONS (3)
  - Neoplasm progression [Unknown]
  - Product use in unapproved indication [Unknown]
  - Death [Fatal]

NARRATIVE: CASE EVENT DATE: 20170419
